FAERS Safety Report 4418584-6 (Version None)
Quarter: 2004Q3

REPORT INFORMATION
  Report Type: 
  Country: None (occurrence: None)
  Receive Date: 20040809
  Receipt Date: 20020826
  Transmission Date: 20050211
  Serious: No
  Sender: FDA-Public Use
  Company Number: US-GLAXOSMITHKLINE-A0379113A

PATIENT
  Sex: Female

DRUGS (3)
  1. PAXIL [Suspect]
     Indication: PANIC ATTACK
     Route: 048
  2. EFFEXOR [Concomitant]
  3. AYGESTIN [Concomitant]

REACTIONS (3)
  - DEPRESSION [None]
  - PANIC ATTACK [None]
  - WEIGHT INCREASED [None]
